FAERS Safety Report 9655009 (Version 1)
Quarter: 2013Q4

REPORT INFORMATION
  Report Type: Spontaneous
  Country: US (occurrence: US)
  Receive Date: 20131029
  Receipt Date: 20131029
  Transmission Date: 20140711
  Serious: No
  Sender: FDA-Public Use
  Company Number: US-PURDUE-USA-2012-0092143

PATIENT
  Sex: Male

DRUGS (3)
  1. OXYCONTIN (NDA 22-272) [Suspect]
     Indication: PAIN
     Dosage: 80 MG, Q12H
     Route: 048
  2. OXYCONTIN (NDA 22-272) [Suspect]
     Dosage: 40 MG, Q12H
     Route: 048
     Dates: end: 20120814
  3. OXYCODONE HCL IR CAPSULES [Concomitant]
     Indication: BREAKTHROUGH PAIN
     Dosage: 30 MG, TID
     Route: 048
     Dates: start: 201207

REACTIONS (6)
  - Pulmonary congestion [Unknown]
  - Wrong technique in drug usage process [Unknown]
  - Rhinitis [Unknown]
  - Sedation [Unknown]
  - Inadequate analgesia [Unknown]
  - Drug effect delayed [Unknown]
